FAERS Safety Report 16142031 (Version 1)
Quarter: 2019Q2

REPORT INFORMATION
  Report Type: Spontaneous
  Country: US (occurrence: US)
  Receive Date: 20190331
  Receipt Date: 20190331
  Transmission Date: 20190711
  Serious: Yes (Hospitalization)
  Sender: FDA-Public Use
  Company Number: None

PATIENT
  Age: 43 Year
  Sex: Female
  Weight: 69.4 kg

DRUGS (3)
  1. SLEEPING PILLS [Concomitant]
     Active Substance: UNSPECIFIED INGREDIENT
  2. MIRENA [Suspect]
     Active Substance: LEVONORGESTREL
  3. VITAMINS [Concomitant]
     Active Substance: VITAMINS

REACTIONS (2)
  - Hypoaesthesia [None]
  - Gait inability [None]

NARRATIVE: CASE EVENT DATE: 20190304
